FAERS Safety Report 4823964-0 (Version None)
Quarter: 2005Q4

REPORT INFORMATION
  Report Type: 
  Country: None (occurrence: None)
  Receive Date: 20051109
  Receipt Date: 20051031
  Transmission Date: 20060501
  Serious: Yes (Death)
  Sender: FDA-Public Use
  Company Number: JP-JNJFOC-20050806617

PATIENT
  Sex: Female

DRUGS (12)
  1. RISPERDAL [Suspect]
     Indication: CHARLES BONNET SYNDROME
     Route: 048
     Dates: start: 20050215, end: 20050820
  2. TIOTROPIUM BROMIDE [Suspect]
     Route: 055
  3. PREDNISOLONE [Suspect]
     Indication: RHEUMATOID ARTHRITIS
     Route: 048
     Dates: start: 19970901, end: 20050820
  4. TULOBUTEROL [Suspect]
     Indication: BRONCHITIS
     Dates: start: 20050801
  5. TRANDOLAPRIL [Concomitant]
     Indication: HYPERTENSION
     Route: 048
     Dates: start: 20001101, end: 20050420
  6. SENNOSIDE [Concomitant]
     Indication: CONSTIPATION
     Route: 048
     Dates: start: 20000401, end: 20050820
  7. MISOPROSTOL [Concomitant]
     Indication: GASTRIC ULCER
     Route: 048
     Dates: start: 19970901, end: 20050420
  8. LOXOPROFEN SODIUM [Concomitant]
     Indication: RHEUMATOID ARTHRITIS
     Route: 048
     Dates: start: 19970901, end: 20050420
  9. QUETIAPINE FUMARATE [Concomitant]
     Indication: CHARLES BONNET SYNDROME
     Route: 048
     Dates: start: 20041101, end: 20050820
  10. BUCILLAMINE [Concomitant]
     Indication: RHEUMATOID ARTHRITIS
     Route: 048
     Dates: start: 20041201, end: 20050420
  11. BROMHEXINE HYDROCHLORIDE [Concomitant]
     Indication: BRONCHITIS
     Route: 048
     Dates: start: 20050801, end: 20050820
  12. ZOPICLONE [Concomitant]
     Indication: CHARLES BONNET SYNDROME
     Route: 048

REACTIONS (5)
  - CARDIOMEGALY [None]
  - CARDIOPULMONARY FAILURE [None]
  - COUGH [None]
  - DISLOCATION OF VERTEBRA [None]
  - PRODUCTIVE COUGH [None]
